FAERS Safety Report 20484811 (Version 1)
Quarter: 2022Q1

REPORT INFORMATION
  Report Type: Spontaneous
  Country: SA (occurrence: SA)
  Receive Date: 20220217
  Receipt Date: 20220217
  Transmission Date: 20220423
  Serious: Yes (Other)
  Sender: FDA-Public Use
  Company Number: SA-SLATE RUN PHARMACEUTICALS-22SA000907

PATIENT

DRUGS (3)
  1. VORICONAZOLE [Suspect]
     Active Substance: VORICONAZOLE
     Indication: Sinusitis aspergillus
     Dosage: 300 MILLIGRAM, BID
     Route: 042
  2. VORICONAZOLE [Suspect]
     Active Substance: VORICONAZOLE
     Indication: Aspergillus infection
  3. VORICONAZOLE [Suspect]
     Active Substance: VORICONAZOLE
     Indication: Cerebral aspergillosis

REACTIONS (4)
  - Abortion spontaneous [Recovered/Resolved]
  - Swelling of eyelid [Recovered/Resolved]
  - Nervous system disorder [Recovered/Resolved]
  - Maternal exposure during pregnancy [Recovered/Resolved]
